FAERS Safety Report 5590081-4 (Version None)
Quarter: 2008Q1

REPORT INFORMATION
  Report Type: 
  Country: None (occurrence: None)
  Receive Date: 20080114
  Receipt Date: 20070226
  Transmission Date: 20080703
  Serious: No
  Sender: FDA-Public Use
  Company Number: US-ABBOTT-07P-163-0361151-00

PATIENT
  Sex: Female
  Weight: 18.841 kg

DRUGS (1)
  1. OMNICEF [Suspect]
     Indication: DRUG USE FOR UNKNOWN INDICATION
     Dosage: 250 CUBIC CENTIMETERS/5 MILLILTER
     Route: 048
     Dates: start: 20070130, end: 20070208

REACTIONS (5)
  - DYSPNOEA [None]
  - JOINT SWELLING [None]
  - RASH [None]
  - SERUM SICKNESS [None]
  - URTICARIA [None]
